FAERS Safety Report 10150868 (Version 1)
Quarter: 2014Q2

REPORT INFORMATION
  Report Type: Report from Study
  Country: US (occurrence: US)
  Receive Date: 20140502
  Receipt Date: 20140502
  Transmission Date: 20141212
  Serious: Yes (Hospitalization)
  Sender: FDA-Public Use
  Company Number: US-ABBVIE-14P-163-1230650-00

PATIENT
  Age: 47 Year
  Sex: Male
  Weight: 63.56 kg

DRUGS (2)
  1. CREON [Suspect]
     Indication: PANCREATITIS
     Dates: start: 201403
  2. OMEPRAZOLE [Concomitant]
     Indication: GASTROOESOPHAGEAL REFLUX DISEASE

REACTIONS (2)
  - Pleuritic pain [Recovering/Resolving]
  - Pulmonary oedema [Recovering/Resolving]
